FAERS Safety Report 5907103-0 (Version None)
Quarter: 2008Q4

REPORT INFORMATION
  Report Type: 
  Country: None (occurrence: None)
  Receive Date: 20081003
  Receipt Date: 20080922
  Transmission Date: 20090506
  Serious: Yes (Other)
  Sender: FDA-Public Use
  Company Number: US-NOVOPROD-279660

PATIENT
  Sex: Female
  Weight: 39.002 kg

DRUGS (2)
  1. NORDITROPIN NORDIFLEX [Suspect]
     Indication: GROWTH RETARDATION
     Dosage: UNK, QD
     Route: 058
     Dates: start: 20070901
  2. NORDITROPIN NORDIFLEX [Suspect]
     Dosage: 15 MG, QD
     Route: 058

REACTIONS (2)
  - SCOLIOSIS [None]
  - UNEQUAL LIMB LENGTH [None]
